FAERS Safety Report 5835477-8 (Version None)
Quarter: 2008Q3

REPORT INFORMATION
  Report Type: 
  Country: None (occurrence: None)
  Receive Date: 20080804
  Receipt Date: 20080717
  Transmission Date: 20090109
  Serious: Yes (Other)
  Sender: FDA-Public Use
  Company Number: 8034933

PATIENT
  Age: 71 Year
  Sex: Female
  Weight: 62.7 kg

DRUGS (6)
  1. XYZAL [Suspect]
     Indication: RHINITIS ALLERGIC
     Dosage: 10 MG/D PO
     Route: 048
     Dates: start: 20080601, end: 20080701
  2. SYNTHROID [Concomitant]
  3. MULTI-VITAMIN [Concomitant]
  4. PREMARIN TOPICAL [Concomitant]
  5. LANOXIN [Concomitant]
  6. MIACALCIN [Concomitant]

REACTIONS (1)
  - THROMBOCYTOPENIA [None]
